FAERS Safety Report 7631368-0 (Version None)
Quarter: 2011Q3

REPORT INFORMATION
  Report Type: 
  Country: None (occurrence: None)
  Receive Date: 20110725
  Receipt Date: 20090930
  Transmission Date: 20111222
  Serious: Yes (Hospitalization, Other)
  Sender: FDA-Public Use
  Company Number: US-BAYER-2011-006550

PATIENT
  Age: 56 Year
  Sex: Male
  Weight: 115.65 kg

DRUGS (29)
  1. TRASYLOL [Suspect]
     Dosage: 200 ML LOADING DOSE
     Route: 042
     Dates: start: 20051119, end: 20051119
  2. PLAVIX [Concomitant]
     Dosage: 75 MG, QD
     Route: 048
  3. ELAVIL [Concomitant]
     Dosage: UNK
     Route: 048
  4. INTEGRILIN [Concomitant]
     Dosage: UNK
     Route: 042
     Dates: start: 20051116
  5. FENTANYL [Concomitant]
     Dosage: UNK
     Dates: start: 20051119
  6. PENTOTHAL [Concomitant]
     Dosage: UNK
     Dates: start: 20051119
  7. AMIODARONE HCL [Concomitant]
  8. TOPROL-XL [Concomitant]
     Dosage: 25 MG, UNK
     Route: 048
  9. SUFENTA PRESERVATIVE FREE [Concomitant]
     Dosage: UNK
     Dates: start: 20051119
  10. INTEGRILIN [Concomitant]
     Dosage: UNK
     Route: 042
     Dates: start: 20050103
  11. FLUTICASONE [Concomitant]
     Dosage: 2 SPRAYS
     Route: 045
  12. GLIPIZIDE [Concomitant]
     Dosage: 30 MG, BID
     Route: 048
  13. HYDROCHLOROTHIAZIDE [Concomitant]
     Dosage: UNK
     Route: 048
  14. HEPARIN [Concomitant]
  15. LEXAPRO [Concomitant]
     Route: 048
  16. RAMIPRIL [Concomitant]
     Dosage: 10 MG, UNK
     Route: 048
  17. DURICEF [Concomitant]
     Dosage: UNK
     Dates: start: 20051119
  18. TRASYLOL [Suspect]
     Indication: CORONARY ARTERY BYPASS
     Dosage: 1 ML, TEST DOSE
     Route: 042
     Dates: start: 20051119, end: 20051119
  19. TRASYLOL [Suspect]
     Dosage: 25 ML/HR
     Route: 042
     Dates: start: 20051119, end: 20051119
  20. ALTACE [Concomitant]
     Dosage: 10 MG, UNK
     Route: 048
  21. LIPITOR [Concomitant]
     Dosage: 20 MG, UNK
     Route: 048
  22. RESTORIL [Concomitant]
     Dosage: ONE CAPSULE AS NEEDED
     Route: 048
  23. VICODIN [Concomitant]
     Dosage: UNK
     Route: 048
  24. METFORMIN [Concomitant]
     Route: 048
  25. ACTOS [Concomitant]
     Dosage: UNK
     Route: 048
  26. ACETYLSALICYLIC ACID SRT [Concomitant]
     Dosage: 75 MG, UNK
     Route: 048
  27. LASIX [Concomitant]
     Dosage: UNK
     Dates: start: 20051119
  28. ATORVASTATIN [Concomitant]
     Dosage: 8 MG, UNK
     Route: 048
  29. TEMAZEPAM [Concomitant]
     Dosage: 15 MG, UNK
     Route: 048

REACTIONS (15)
  - FEAR OF DEATH [None]
  - INJURY [None]
  - STRESS [None]
  - EMOTIONAL DISTRESS [None]
  - RENAL INJURY [None]
  - CARDIAC ARREST [None]
  - ANXIETY [None]
  - UNEVALUABLE EVENT [None]
  - PAIN [None]
  - FEAR [None]
  - DEPRESSION [None]
  - MULTI-ORGAN FAILURE [None]
  - RENAL FAILURE [None]
  - ANHEDONIA [None]
  - NERVOUSNESS [None]
